FAERS Safety Report 18663822 (Version 2)
Quarter: 2021Q1

REPORT INFORMATION
  Report Type: Report from Study
  Country: None (occurrence: CA)
  Receive Date: 20201225
  Receipt Date: 20210309
  Transmission Date: 20210419
  Serious: Yes (Other)
  Sender: FDA-Public Use
  Company Number: CA-ABBVIE-20K-028-3597562-00

PATIENT
  Age: 66 Year
  Sex: Male

DRUGS (3)
  1. RINVOQ [Suspect]
     Active Substance: UPADACITINIB
     Indication: RHEUMATOID ARTHRITIS
     Route: 048
     Dates: start: 20200320, end: 20200831
  2. XOLAIR [Suspect]
     Active Substance: OMALIZUMAB
     Indication: PRODUCT USED FOR UNKNOWN INDICATION
     Route: 065
  3. RINVOQ [Suspect]
     Active Substance: UPADACITINIB
     Route: 048

REACTIONS (8)
  - Anaphylactic reaction [Unknown]
  - Headache [Unknown]
  - Immunodeficiency [Unknown]
  - Paranasal sinus discomfort [Unknown]
  - Rash [Unknown]
  - Dizziness [Unknown]
  - Histamine level increased [Unknown]
  - Urticaria [Unknown]

NARRATIVE: CASE EVENT DATE: 2020
